FAERS Safety Report 25287504 (Version 2)
Quarter: 2025Q4

REPORT INFORMATION
  Report Type: Other
  Country: CA (occurrence: CA)
  Receive Date: 20250509
  Receipt Date: 20251008
  Transmission Date: 20260118
  Serious: Yes (Life-Threatening, Hospitalization)
  Sender: PFIZER
  Company Number: CA-PFIZER INC-202500096368

PATIENT
  Age: 41 Year
  Sex: Male

DRUGS (1)
  1. METHYLPREDNISOLONE SODIUM SUCCINATE [Suspect]
     Active Substance: METHYLPREDNISOLONE SODIUM SUCCINATE
     Indication: COVID-19
     Dosage: 1000 MG, 1X/DAY
     Route: 042

REACTIONS (1)
  - Product ineffective [Unknown]
